FAERS Safety Report 5505746-X (Version None)
Quarter: 2007Q4

REPORT INFORMATION
  Report Type: 
  Country: None (occurrence: None)
  Receive Date: 20071102
  Receipt Date: 20071022
  Transmission Date: 20080405
  Serious: Yes (Hospitalization)
  Sender: FDA-Public Use
  Company Number: JP-PFIZER INC-2007088861

PATIENT
  Age: 26 Year
  Sex: Male

DRUGS (8)
  1. SOLANAX [Suspect]
     Route: 048
  2. POLYCARBOPHIL CALCIUM [Concomitant]
     Route: 048
  3. GASCON [Concomitant]
     Route: 048
  4. LEXOTAN [Concomitant]
     Route: 048
  5. DOGMATYL [Concomitant]
  6. BUSCOPAN [Concomitant]
  7. INDERAL [Concomitant]
  8. LOPEMIN [Concomitant]
     Route: 048

REACTIONS (1)
  - EPILEPSY [None]
